FAERS Safety Report 6256343-2 (Version None)
Quarter: 2009Q3

REPORT INFORMATION
  Report Type: 
  Country: None (occurrence: None)
  Receive Date: 20090706
  Receipt Date: 20090622
  Transmission Date: 20100115
  Serious: Yes (Death, Hospitalization)
  Sender: FDA-Public Use
  Company Number: JP-ROCHE-635013

PATIENT
  Age: 54 Year
  Sex: Female

DRUGS (8)
  1. CAPECITABINE [Suspect]
     Dosage: FOR 3 WEEKS, FOLLOWED BY A 1-WEEK REST PERIOD
     Route: 048
  2. CAPECITABINE [Suspect]
     Route: 048
  3. TRASTUZUMAB [Suspect]
     Indication: BREAST CANCER METASTATIC
     Route: 041
     Dates: start: 20040101, end: 20040101
  4. TRASTUZUMAB [Suspect]
     Dosage: DOSE DECREASED.
     Route: 041
     Dates: end: 20070101
  5. TAXOL [Suspect]
     Indication: BREAST CANCER METASTATIC
     Route: 041
  6. ANASTROZOLE [Concomitant]
  7. 1 CONCOMITANT DRUG [Concomitant]
     Dosage: EXEMESTAN
  8. VINORELBINE TARTRATE [Concomitant]

REACTIONS (6)
  - ASTHENIA [None]
  - BREAST CANCER METASTATIC [None]
  - NEUTROPHIL COUNT DECREASED [None]
  - PAIN [None]
  - PALMAR-PLANTAR ERYTHRODYSAESTHESIA SYNDROME [None]
  - PARAESTHESIA [None]
